FAERS Safety Report 4973723-3 (Version None)
Quarter: 2006Q2

REPORT INFORMATION
  Report Type: 
  Country: None (occurrence: None)
  Receive Date: 20060414
  Receipt Date: 20050930
  Transmission Date: 20061013
  Serious: Yes (Hospitalization)
  Sender: FDA-Public Use
  Company Number: US-MERCK-0510USA02073

PATIENT
  Age: 74 Year
  Sex: Female
  Weight: 68 kg

DRUGS (11)
  1. VIOXX [Suspect]
     Indication: ARTHRITIS
     Route: 048
     Dates: start: 20010814
  2. VIOXX [Suspect]
     Indication: ARTHRALGIA
     Route: 048
     Dates: start: 20010814
  3. ASPIRIN [Concomitant]
     Route: 065
  4. VITAMINS (UNSPECIFIED) [Concomitant]
     Route: 065
  5. DETROL [Concomitant]
     Route: 065
  6. VERELAN PM [Concomitant]
     Route: 065
     Dates: end: 20020418
  7. CITRACAL [Concomitant]
     Route: 065
  8. ATACAND [Concomitant]
     Route: 065
  9. XALATAN [Concomitant]
     Route: 065
  10. PLAVIX [Concomitant]
     Route: 065
  11. HYDREA [Concomitant]
     Route: 065

REACTIONS (17)
  - BASAL CELL CARCINOMA [None]
  - CARDIAC MURMUR [None]
  - CEREBROVASCULAR ACCIDENT [None]
  - CHRONIC OBSTRUCTIVE PULMONARY DISEASE [None]
  - CONSTIPATION [None]
  - COUGH [None]
  - DYSPNOEA [None]
  - ENURESIS [None]
  - FALL [None]
  - FATIGUE [None]
  - HEPATIC ENZYME ABNORMAL [None]
  - HYPERTENSION [None]
  - POLYCYTHAEMIA [None]
  - SCOLIOSIS [None]
  - STRESS INCONTINENCE [None]
  - URGE INCONTINENCE [None]
  - URINARY INCONTINENCE [None]
